FAERS Safety Report 9833154 (Version 1)
Quarter: 2014Q1

REPORT INFORMATION
  Report Type: Spontaneous
  Country: US (occurrence: US)
  Receive Date: 20140121
  Receipt Date: 20140121
  Transmission Date: 20141002
  Serious: No
  Sender: FDA-Public Use
  Company Number: US-BAUSCH-BL-2012-002131

PATIENT
  Age: 75 Year
  Sex: Female

DRUGS (1)
  1. ALAWAY [Suspect]
     Indication: EYE IRRITATION
     Dosage: 1 DROP IN EACH EYE, TWO TIMES PER DAY
     Route: 047
     Dates: start: 201211

REACTIONS (1)
  - Instillation site pain [Not Recovered/Not Resolved]
